FAERS Safety Report 7968146-9 (Version None)
Quarter: 2011Q4

REPORT INFORMATION
  Report Type: 
  Country: None (occurrence: None)
  Receive Date: 20111207
  Receipt Date: 20111124
  Transmission Date: 20120403
  Serious: Yes (Other)
  Sender: FDA-Public Use
  Company Number: 2011AP002826

PATIENT
  Age: 74 Year
  Sex: Male

DRUGS (4)
  1. HYDROCHLOROTHIAZIDE [Concomitant]
  2. ALLOPURINOL [Suspect]
     Indication: GOUT
     Dosage: 0.5 DF;TAB;PO;QD
     Route: 048
     Dates: start: 20110915
  3. ATORVASTATIN CALCIUM [Concomitant]
  4. IRBESARTAN [Concomitant]

REACTIONS (2)
  - RENAL IMPAIRMENT [None]
  - PAIN IN EXTREMITY [None]
